FAERS Safety Report 10836954 (Version 1)
Quarter: 2015Q1

REPORT INFORMATION
  Report Type: Spontaneous
  Country: US (occurrence: US)
  Receive Date: 20150219
  Receipt Date: 20150219
  Transmission Date: 20150721
  Serious: No
  Sender: FDA-Public Use
  Company Number: US-ABBVIE-14P-163-1213781-00

PATIENT
  Age: 37 Year
  Sex: Female
  Weight: 54.03 kg

DRUGS (2)
  1. HUMIRA [Suspect]
     Active Substance: ADALIMUMAB
     Indication: CROHN^S DISEASE
     Route: 058
     Dates: start: 20140223
  2. MULTIVITAMIN [Concomitant]
     Active Substance: VITAMINS
     Indication: VITAMIN SUPPLEMENTATION

REACTIONS (2)
  - Incorrect product storage [Not Recovered/Not Resolved]
  - Poor quality drug administered [Not Recovered/Not Resolved]

NARRATIVE: CASE EVENT DATE: 20140309
